FAERS Safety Report 4372393-5 (Version None)
Quarter: 2004Q2

REPORT INFORMATION
  Report Type: 
  Country: None (occurrence: None)
  Receive Date: 20040526
  Receipt Date: 20040513
  Transmission Date: 20050107
  Serious: Yes (Death)
  Sender: FDA-Public Use
  Company Number: A-CH2003-03994

PATIENT
  Age: 26 Year
  Sex: Female
  Weight: 55 kg

DRUGS (2)
  1. TRACLEER [Suspect]
     Indication: PULMONARY HYPERTENSION
     Dosage: 62.5 + 125 MG, BID, ORAL
     Route: 048
     Dates: start: 20020925, end: 20021024
  2. TRACLEER [Suspect]
     Indication: PULMONARY HYPERTENSION
     Dosage: 62.5 + 125 MG, BID, ORAL
     Route: 048
     Dates: start: 20021025, end: 20031208

REACTIONS (8)
  - CARDIAC ARREST [None]
  - CARDIOMEGALY [None]
  - COMPLICATIONS OF TRANSPLANT SURGERY [None]
  - HEART AND LUNG TRANSPLANT [None]
  - MYOCARDIAL REPERFUSION INJURY [None]
  - PULMONARY OEDEMA [None]
  - REMOVAL OF TRANSPLANTED ORGAN [None]
  - RENAL FAILURE [None]
